FAERS Safety Report 9643319 (Version 2)
Quarter: 2013Q4

REPORT INFORMATION
  Report Type: Spontaneous
  Country: US (occurrence: US)
  Receive Date: 20131024
  Receipt Date: 20131109
  Transmission Date: 20140711
  Serious: Yes (Hospitalization)
  Sender: FDA-Public Use
  Company Number: US-009507513-1310USA008156

PATIENT
  Age: 73 Year
  Sex: 0

DRUGS (1)
  1. ASMANEX TWISTHALER [Suspect]
     Indication: ASTHMA
     Dosage: AEROSOL EA, 220 MICROGRAM, BID
     Route: 055
     Dates: start: 201010

REACTIONS (3)
  - Adverse event [Recovered/Resolved]
  - Device malfunction [Unknown]
  - Drug dose omission [Unknown]
